FAERS Safety Report 10143538 (Version 1)
Quarter: 2014Q2

REPORT INFORMATION
  Report Type: Spontaneous
  Country: US (occurrence: US)
  Receive Date: 20140430
  Receipt Date: 20140430
  Transmission Date: 20141212
  Serious: Yes (Other)
  Sender: FDA-Public Use
  Company Number: US-SA-2014SA056117

PATIENT
  Sex: Male

DRUGS (1)
  1. ALLEGRA ALLERGY, 12 HR [Suspect]
     Indication: PRODUCT USED FOR UNKNOWN INDICATION
     Route: 048

REACTIONS (3)
  - Cataract [Unknown]
  - Glaucoma [Unknown]
  - Hypertension [Unknown]
